FAERS Safety Report 4914887-7 (Version None)
Quarter: 2006Q1

REPORT INFORMATION
  Report Type: 
  Country: None (occurrence: None)
  Receive Date: 20060217
  Receipt Date: 20060116
  Transmission Date: 20060701
  Serious: Yes (Hospitalization)
  Sender: FDA-Public Use
  Company Number: AU-BOEHRINGER INGELHEIM PHARMACEUTICALS, INC.-2006-BP-00432AU

PATIENT
  Sex: Male

DRUGS (5)
  1. ASASANTIN SR (CAPSULE, LONG ACTING) [Suspect]
     Indication: CEREBROVASCULAR ACCIDENT
  2. ATENOLOL [Concomitant]
     Indication: HYPERTENSION
     Route: 048
  3. AVAPRO [Concomitant]
     Indication: HYPERTENSION
     Route: 048
  4. MIXTARD (INSULIN (NEUTRAL/ISOPHANE) [Concomitant]
     Indication: DIABETES MELLITUS
     Route: 058
  5. LIPEX [Concomitant]
     Indication: HYPERLIPIDAEMIA
     Route: 048

REACTIONS (4)
  - EPISTAXIS [None]
  - MELAENA [None]
  - PETECHIAE [None]
  - PLATELET COUNT DECREASED [None]
